FAERS Safety Report 4648627-6 (Version None)
Quarter: 2005Q2

REPORT INFORMATION
  Report Type: 
  Country: None (occurrence: None)
  Receive Date: 20050429
  Receipt Date: 20040428
  Transmission Date: 20051028
  Serious: No
  Sender: FDA-Public Use
  Company Number: US-GLAXOSMITHKLINE-A0508773A

PATIENT
  Age: 22 Year
  Sex: Female

DRUGS (1)
  1. AMERGE [Suspect]
     Indication: MIGRAINE
     Dosage: 2.5MG SEE DOSAGE TEXT
     Route: 048

REACTIONS (1)
  - CHEST DISCOMFORT [None]
